FAERS Safety Report 7285092-7 (Version None)
Quarter: 2011Q1

REPORT INFORMATION
  Report Type: 
  Country: None (occurrence: None)
  Receive Date: 20110210
  Receipt Date: 20110129
  Transmission Date: 20110831
  Serious: Yes (Other)
  Sender: FDA-Public Use
  Company Number: PHHY2011MX07094

PATIENT
  Age: 28 Year
  Sex: Male

DRUGS (1)
  1. GENTEAL GEL [Suspect]
     Dosage: 1 DRP, QH
     Dates: start: 20030101

REACTIONS (1)
  - PNEUMONIA [None]
